FAERS Safety Report 22324484 (Version 1)
Quarter: 2023Q2

REPORT INFORMATION
  Report Type: Spontaneous
  Country: GR (occurrence: GR)
  Receive Date: 20230516
  Receipt Date: 20230516
  Transmission Date: 20230722
  Serious: Yes (Hospitalization, Other)
  Sender: FDA-Public Use
  Company Number: GR-GLAXOSMITHKLINE-GRCH2023EME021533

PATIENT

DRUGS (1)
  1. IBUPROFEN [Suspect]
     Active Substance: IBUPROFEN
     Indication: Back pain
     Dosage: UNK

REACTIONS (6)
  - Henoch-Schonlein purpura [Unknown]
  - Cutaneous vasculitis [Unknown]
  - Oedema [Unknown]
  - Pain [Unknown]
  - Petechiae [Unknown]
  - Leukocytosis [Unknown]
